FAERS Safety Report 12243861 (Version 1)
Quarter: 2016Q2

REPORT INFORMATION
  Report Type: Report from Study
  Country: US (occurrence: US)
  Receive Date: 20160406
  Receipt Date: 20160406
  Transmission Date: 20160815
  Serious: Yes (Other)
  Sender: FDA-Public Use
  Company Number: US-EXELIXIS-XL18416006211

PATIENT
  Age: 70 Year
  Sex: Female

DRUGS (2)
  1. XL184 [Suspect]
     Active Substance: CABOZANTINIB
     Indication: OVARIAN EPITHELIAL CANCER
     Dosage: 60 MG, QD
     Route: 048
     Dates: start: 20151112
  2. MAGNESIUM [Suspect]
     Active Substance: MAGNESIUM

REACTIONS (1)
  - Syncope [Recovered/Resolved]

NARRATIVE: CASE EVENT DATE: 20151201
